FAERS Safety Report 6003768-6 (Version None)
Quarter: 2008Q4

REPORT INFORMATION
  Report Type: 
  Country: None (occurrence: None)
  Receive Date: 20081216
  Receipt Date: 20081209
  Transmission Date: 20090506
  Serious: Yes (Other)
  Sender: FDA-Public Use
  Company Number: PHHY2008JP16947

PATIENT
  Sex: Female

DRUGS (9)
  1. COMTAN [Suspect]
     Indication: PARKINSON'S DISEASE
     Dosage: 100 MG, TID
     Route: 048
     Dates: start: 20080408, end: 20080526
  2. COMTAN [Suspect]
     Indication: DRUG EFFECT DECREASED
  3. DIAZEPAM [Concomitant]
     Dosage: 6 MG
     Route: 048
     Dates: start: 20040223
  4. PERMAX [Concomitant]
     Dosage: 750 UG
     Route: 048
     Dates: start: 20040223
  5. NEODOPASOL [Concomitant]
     Dosage: 400 MG
     Route: 048
     Dates: start: 20040223
  6. LUDIOMIL [Concomitant]
     Dosage: 20 MG
     Route: 048
     Dates: start: 20040223
  7. METLIGINE [Concomitant]
     Dosage: 4 MG
     Dates: start: 20080223
  8. SELBEX [Concomitant]
     Dosage: 150 MG
     Dates: start: 20040223
  9. DOPS [Concomitant]
     Dosage: UNK
     Route: 048
     Dates: start: 20040223

REACTIONS (4)
  - CHROMATURIA [None]
  - DYSKINESIA [None]
  - FALL [None]
  - FEEDING DISORDER [None]
